FAERS Safety Report 20945497 (Version 1)
Quarter: 2022Q2

REPORT INFORMATION
  Report Type: Spontaneous
  Country: FR (occurrence: FR)
  Receive Date: 20220610
  Receipt Date: 20220610
  Transmission Date: 20220721
  Serious: Yes (Other)
  Sender: FDA-Public Use
  Company Number: None

PATIENT
  Age: 80 Year
  Sex: Female
  Weight: 65 kg

DRUGS (13)
  1. PIPERACILLIN SODIUM\TAZOBACTAM SODIUM [Suspect]
     Active Substance: PIPERACILLIN SODIUM\TAZOBACTAM SODIUM
     Indication: Pneumonia
     Dosage: 12 G, 1X/DAY
     Route: 042
     Dates: start: 20201009, end: 20201013
  2. BACTRIM [Suspect]
     Active Substance: SULFAMETHOXAZOLE\TRIMETHOPRIM
     Indication: Pneumonia
     Dosage: 12 DF, DAILY
     Route: 042
     Dates: start: 20201010, end: 20201013
  3. VORICONAZOLE [Suspect]
     Active Substance: VORICONAZOLE
     Indication: Infection
     Dosage: UNK
     Route: 042
     Dates: start: 20201012, end: 20201016
  4. FLUDROCORTISONE ACETATE [Concomitant]
     Active Substance: FLUDROCORTISONE ACETATE
     Indication: Resuscitation
     Dosage: 50 UG, 1X/DAY
     Route: 048
     Dates: start: 20201009
  5. NIMBEX [Concomitant]
     Active Substance: CISATRACURIUM BESYLATE
     Indication: Resuscitation
     Dosage: UNK
     Route: 042
     Dates: start: 20201009, end: 20201020
  6. ALBUTEROL [Concomitant]
     Active Substance: ALBUTEROL
     Indication: Dyspnoea
     Dosage: UNK
     Route: 055
  7. NOREPINEPHRINE [Concomitant]
     Active Substance: NOREPINEPHRINE
     Indication: Resuscitation
     Dosage: UNK
     Route: 042
     Dates: start: 20201009
  8. VALACYCLOVIR [Concomitant]
     Active Substance: VALACYCLOVIR HYDROCHLORIDE
     Indication: Prophylaxis
     Dosage: 500 MG, ALTERNATE DAY
     Route: 048
  9. DIPRIVAN [Concomitant]
     Active Substance: PROPOFOL
     Indication: Resuscitation
     Dosage: UNK
     Route: 042
     Dates: start: 20201009
  10. LOVENOX [Concomitant]
     Active Substance: ENOXAPARIN SODIUM
     Indication: Thrombosis prophylaxis
     Dosage: 2 DF, 1X/DAY
     Route: 058
     Dates: start: 20201009
  11. DEXAMETHASONE [Concomitant]
     Active Substance: DEXAMETHASONE
     Dosage: 6 MG, 1X/DAY
     Route: 042
  12. SUFENTA [Concomitant]
     Active Substance: SUFENTANIL CITRATE
     Indication: Resuscitation
     Dosage: UNK
     Route: 042
     Dates: start: 20201009
  13. INSULIN NOS [Concomitant]
     Active Substance: INSULIN NOS
     Dosage: UNK
     Route: 058

REACTIONS (1)
  - Hepatitis cholestatic [Recovering/Resolving]

NARRATIVE: CASE EVENT DATE: 20201014
